FAERS Safety Report 4423173-3 (Version None)
Quarter: 2004Q3

REPORT INFORMATION
  Report Type: 
  Country: None (occurrence: None)
  Receive Date: 20040713
  Receipt Date: 20031020
  Transmission Date: 20050211
  Serious: No
  Sender: FDA-Public Use
  Company Number: PHEH2003US08617

PATIENT
  Age: 33 Year
  Sex: Male

DRUGS (1)
  1. ELIDEL [Suspect]
     Indication: PARAPSORIASIS
     Dosage: TOPICAL
     Route: 061
     Dates: start: 20030916, end: 20030918

REACTIONS (3)
  - MALAISE [None]
  - PYREXIA [None]
  - TINEA VERSICOLOUR [None]
